FAERS Safety Report 6856815-3 (Version None)
Quarter: 2010Q3

REPORT INFORMATION
  Report Type: 
  Country: None (occurrence: None)
  Receive Date: 20100719
  Receipt Date: 20100708
  Transmission Date: 20110219
  Serious: Yes (Hospitalization)
  Sender: FDA-Public Use
  Company Number: US-AMGEN-KDL422651

PATIENT
  Sex: Female
  Weight: 61.7 kg

DRUGS (4)
  1. ENBREL [Suspect]
     Indication: RHEUMATOID ARTHRITIS
     Route: 058
     Dates: start: 20020101
  2. FOSAMAX [Concomitant]
  3. PREDNISONE [Concomitant]
  4. PLAQUENIL [Concomitant]

REACTIONS (4)
  - NASOPHARYNGITIS [None]
  - NEPHROLITHIASIS [None]
  - STAPHYLOCOCCAL INFECTION [None]
  - URINARY TRACT INFECTION [None]
